FAERS Safety Report 11232213 (Version 1)
Quarter: 2015Q2

REPORT INFORMATION
  Report Type: Spontaneous
  Country: US (occurrence: None)
  Receive Date: 20150616
  Receipt Date: 20150616
  Transmission Date: 20150821
  Serious: Yes (Other)
  Sender: FDA-Public Use
  Company Number: 1555735

PATIENT
  Age: 32 Year
  Sex: Female
  Weight: 60.33 kg

DRUGS (3)
  1. TRAMADOL (TRAMADOL) (TABLET) [Concomitant]
  2. ACTEMRA [Suspect]
     Active Substance: TOCILIZUMAB
     Indication: RHEUMATOID ARTHRITIS
     Dosage: (162 MG, 1 IN 2 WK)
     Route: 058
  3. METHOTREXATE [Concomitant]
     Active Substance: METHOTREXATE

REACTIONS (2)
  - Ectopic pregnancy [None]
  - Maternal exposure during pregnancy [None]
